FAERS Safety Report 4346347-9 (Version None)
Quarter: 2004Q2

REPORT INFORMATION
  Report Type: 
  Country: None (occurrence: None)
  Receive Date: 20040423
  Receipt Date: 20040423
  Transmission Date: 20050107
  Serious: Yes (Other)
  Sender: FDA-Public Use
  Company Number: None

PATIENT

DRUGS (2)
  1. DEPAKANE - GENERIC [Suspect]
     Indication: CONVULSION
     Dosage: 250 - 3 AM / 3 PM
  2. MYSOLINE [Suspect]
     Indication: CONVULSION
     Dosage: 250   1 AM, 1 PM

REACTIONS (2)
  - CONVULSION [None]
  - PHARMACEUTICAL PRODUCT COMPLAINT [None]
